FAERS Safety Report 9128307 (Version 1)
Quarter: 2013Q1

REPORT INFORMATION
  Report Type: Spontaneous
  Country: US (occurrence: US)
  Receive Date: 20130228
  Receipt Date: 20130228
  Transmission Date: 20140127
  Serious: No
  Sender: FDA-Public Use
  Company Number: US-ABBOTT-13P-163-1045883-00

PATIENT
  Sex: Male
  Weight: 136.2 kg

DRUGS (4)
  1. ANDROGEL 1.62% [Suspect]
     Indication: BLOOD TESTOSTERONE DECREASED
     Dosage: 3 PUMPS A DAY
     Dates: start: 201211, end: 20130204
  2. ANDROGEL 1.62% [Suspect]
     Dosage: 1% PACKETS
     Dates: start: 20130205
  3. ANDROGEL 1.62% [Suspect]
     Dosage: 1% PACKETS
     Dates: end: 201211
  4. LISINOPRIL [Concomitant]
     Indication: HYPERTENSION

REACTIONS (1)
  - Prostatitis [Not Recovered/Not Resolved]
